FAERS Safety Report 17284449 (Version 1)
Quarter: 2020Q1

REPORT INFORMATION
  Report Type: Spontaneous
  Country: US (occurrence: US)
  Receive Date: 20200117
  Receipt Date: 20200117
  Transmission Date: 20200409
  Serious: No
  Sender: FDA-Public Use
  Company Number: US-JNJFOC-20200104219

PATIENT
  Sex: Male
  Weight: 56.75 kg

DRUGS (1)
  1. TYLENOL REGULAR STRENGTH [Suspect]
     Active Substance: ACETAMINOPHEN
     Indication: HEADACHE
     Dosage: NOT PROVIDE IN THE RESPONSE. GOT THE FLU SHOT.
     Route: 048
     Dates: end: 20200102

REACTIONS (1)
  - Expired product administered [Unknown]
